FAERS Safety Report 16570144 (Version 1)
Quarter: 2019Q3

REPORT INFORMATION
  Report Type: Spontaneous
  Country: US (occurrence: US)
  Receive Date: 20190531
  Receipt Date: 20190531
  Transmission Date: 20191004
  Serious: Yes (Hospitalization)
  Sender: FDA-Public Use
  Company Number: None

PATIENT
  Age: 64 Year
  Sex: Female
  Weight: 81 kg

DRUGS (1)
  1. APIXABAN [Suspect]
     Active Substance: APIXABAN
     Indication: PULMONARY EMBOLISM
     Route: 048
     Dates: start: 20181109, end: 20181118

REACTIONS (4)
  - Dyspnoea [None]
  - Arteriovenous malformation [None]
  - Gastrointestinal haemorrhage [None]
  - Pulmonary embolism [None]

NARRATIVE: CASE EVENT DATE: 20181118
